FAERS Safety Report 13254643 (Version 1)
Quarter: 2017Q1

REPORT INFORMATION
  Report Type: Spontaneous
  Country: BD (occurrence: BD)
  Receive Date: 20170221
  Receipt Date: 20170221
  Transmission Date: 20170428
  Serious: Yes (Death, Hospitalization)
  Sender: FDA-Public Use
  Company Number: BD-ROCHE-1894836

PATIENT
  Age: 70 Year
  Sex: Female

DRUGS (5)
  1. HYDROXYDAUNORUBICIN [Suspect]
     Active Substance: DOXORUBICIN
     Indication: DIFFUSE LARGE B-CELL LYMPHOMA
     Dosage: 1ST CYCLE
     Route: 065
     Dates: start: 20170126
  2. RITUXIMAB [Suspect]
     Active Substance: RITUXIMAB
     Indication: DIFFUSE LARGE B-CELL LYMPHOMA
     Dosage: 1ST CYCLE
     Route: 065
     Dates: start: 20170126
  3. PREDNISOLONE. [Suspect]
     Active Substance: PREDNISOLONE
     Indication: DIFFUSE LARGE B-CELL LYMPHOMA
     Dosage: 1ST CYCLE
     Route: 065
     Dates: start: 20170126
  4. CYCLOPHOSPHAMIDE. [Suspect]
     Active Substance: CYCLOPHOSPHAMIDE
     Indication: DIFFUSE LARGE B-CELL LYMPHOMA
     Dosage: 1ST CYCLE
     Route: 065
     Dates: start: 20170126
  5. VINCRISTINE [Suspect]
     Active Substance: VINCRISTINE
     Indication: DIFFUSE LARGE B-CELL LYMPHOMA
     Dosage: 1ST CYCLE
     Route: 065
     Dates: start: 20170126

REACTIONS (4)
  - Respiratory distress [Fatal]
  - Oxygen saturation decreased [Fatal]
  - Rales [Fatal]
  - Pneumonia [Fatal]

NARRATIVE: CASE EVENT DATE: 20170202
